FAERS Safety Report 7815308-7 (Version None)
Quarter: 2011Q4

REPORT INFORMATION
  Report Type: 
  Country: None (occurrence: None)
  Receive Date: 20111014
  Receipt Date: 20111012
  Transmission Date: 20120403
  Serious: No
  Sender: FDA-Public Use
  Company Number: US-B.I. PHARMACEUTICALS,INC./RIDGEFIELD-2011-BP-24120BP

PATIENT
  Sex: Male

DRUGS (14)
  1. QUINAPRIL HCT [Concomitant]
     Indication: HYPERTENSION
  2. FLECAINIDE ACETATE [Concomitant]
  3. BUSPAR [Concomitant]
  4. CALCIUM CARBONATE [Concomitant]
  5. PRADAXA [Suspect]
     Indication: ATRIAL FIBRILLATION
     Dosage: 300 MG
     Route: 048
     Dates: start: 20110601
  6. ATENOLOL [Concomitant]
  7. POTASSIUM CHLORIDE [Concomitant]
  8. STOOL SOFTENER [Concomitant]
  9. LOSARTAN POTASSIUM [Suspect]
     Indication: HYPERTENSION
     Dosage: 100 MG
     Dates: start: 20110701
  10. METFORMIN HYDROCHLORIDE [Concomitant]
     Indication: TYPE 2 DIABETES MELLITUS
  11. NORVASC [Concomitant]
     Indication: HYPERTENSION
  12. TRAMADOL ULTRA [Concomitant]
  13. ACTOS [Concomitant]
     Indication: TYPE 2 DIABETES MELLITUS
  14. FUROSEMIDE [Concomitant]

REACTIONS (3)
  - FAECES PALE [None]
  - FLATULENCE [None]
  - DIARRHOEA [None]
